FAERS Safety Report 7585000-5 (Version None)
Quarter: 2011Q2

REPORT INFORMATION
  Report Type: 
  Country: None (occurrence: None)
  Receive Date: 20110630
  Receipt Date: 20110621
  Transmission Date: 20111010
  Serious: Yes (Hospitalization, Other)
  Sender: FDA-Public Use
  Company Number: US-ASTRAZENECA-2011SE37502

PATIENT
  Age: 57 Year
  Sex: Female

DRUGS (15)
  1. MAXALT [Concomitant]
     Indication: MIGRAINE
     Route: 048
  2. EXCEDRIN (MIGRAINE) [Concomitant]
     Indication: PAIN
     Route: 048
  3. ATENOLOL [Concomitant]
     Indication: ANXIETY
     Route: 048
  4. ATENOLOL [Concomitant]
     Indication: HYPERTENSION
     Route: 048
  5. WELLBUTRIN SR [Concomitant]
     Indication: MIGRAINE
     Route: 048
  6. FLEXERIL [Concomitant]
     Indication: MIGRAINE
     Route: 048
  7. NEXIUM [Suspect]
     Indication: GASTROOESOPHAGEAL REFLUX DISEASE
     Route: 048
  8. VALIUM [Concomitant]
     Indication: STRESS
     Route: 048
  9. BUSPAR [Concomitant]
     Indication: SEDATIVE THERAPY
     Route: 048
  10. ADVIL LIQUI-GELS [Concomitant]
     Indication: PAIN
     Route: 048
  11. VITAMIN TAB [Concomitant]
     Indication: PAIN
     Route: 048
  12. PRILOSEC OTC [Suspect]
     Route: 048
  13. PRILOSEC [Concomitant]
     Indication: GASTROOESOPHAGEAL REFLUX DISEASE
     Route: 048
  14. ANASTRAZOLE [Concomitant]
     Indication: HORMONE THERAPY
     Route: 048
  15. CLONIDINE [Concomitant]
     Indication: HOT FLUSH
     Dosage: 0.1, DAILY
     Route: 048

REACTIONS (8)
  - RADIOTHERAPY [None]
  - DRUG INEFFECTIVE [None]
  - BREAST CANCER [None]
  - TOOTH FRACTURE [None]
  - MIGRAINE [None]
  - MALIGNANT TUMOUR EXCISION [None]
  - TOOTH EXTRACTION [None]
  - DENTAL CARE [None]
